FAERS Safety Report 7490595-6 (Version None)
Quarter: 2011Q2

REPORT INFORMATION
  Report Type: 
  Country: None (occurrence: None)
  Receive Date: 20110519
  Receipt Date: 20110510
  Transmission Date: 20111010
  Serious: Yes (Hospitalization)
  Sender: FDA-Public Use
  Company Number: FR-ASTRAZENECA-2011SE02644

PATIENT
  Age: 55 Year
  Sex: Male
  Weight: 80 kg

DRUGS (6)
  1. OROCAL D3 [Concomitant]
     Dates: start: 20080101
  2. ACETAMINOPHEN [Concomitant]
     Dates: start: 20080101
  3. VANDETANIB [Suspect]
     Indication: THYROID CANCER
     Route: 048
     Dates: start: 20101203, end: 20101214
  4. LEVOTHYROXINE SODIUM [Concomitant]
     Dates: start: 20080101
  5. CYMBALTA [Concomitant]
     Dates: start: 20100301
  6. UN ALFA [Concomitant]
     Dates: start: 20100301

REACTIONS (1)
  - CEREBROVASCULAR SPASM [None]
